FAERS Safety Report 6580424-7 (Version None)
Quarter: 2010Q1

REPORT INFORMATION
  Report Type: 
  Country: None (occurrence: None)
  Receive Date: 20100212
  Receipt Date: 20100204
  Transmission Date: 20100710
  Serious: Yes (Other)
  Sender: FDA-Public Use
  Company Number: PHEH2006US08849

PATIENT
  Sex: Female
  Weight: 58.503 kg

DRUGS (21)
  1. ESTRADERM [Suspect]
     Indication: HORMONE REPLACEMENT THERAPY
     Route: 062
     Dates: start: 19940101, end: 20040101
  2. CLIMARA [Suspect]
  3. PREMARIN [Suspect]
     Indication: MENOPAUSAL SYMPTOMS
  4. CRESTOR [Concomitant]
     Dosage: 5 MG, QD
  5. ZETIA [Concomitant]
     Dosage: 10
  6. CITRACAL [Concomitant]
  7. MULTIVITAMIN ^LAPPE^ [Concomitant]
  8. LORAZEPAM [Concomitant]
     Dosage: 0.5
  9. ASPIRIN [Concomitant]
     Dosage: 81 MG, QD
  10. ASPIRIN [Concomitant]
     Dosage: 81 MG, UNK
  11. NEURONTIN [Concomitant]
  12. ULTRAM [Concomitant]
  13. PROPOXYPHENE NAPSYLATE W/ ACETAMINOPHEN [Concomitant]
  14. TOBRADEX [Concomitant]
     Dosage: UNK
  15. PRINIVIL [Concomitant]
     Dosage: UNK
  16. ZITHROMAX [Suspect]
     Dosage: UNK
  17. CIPRO [Concomitant]
     Dosage: UNK
  18. TRIMOX [Concomitant]
     Dosage: UNK
  19. LORAZEPAM [Concomitant]
     Dosage: UNK
  20. ERY-TAB [Concomitant]
     Dosage: UNK
  21. CEPHALEXIN [Concomitant]
     Dosage: 500 MG, UNK

REACTIONS (39)
  - ABDOMINAL PAIN [None]
  - ABDOMINAL PAIN UPPER [None]
  - ADNEXA UTERI MASS [None]
  - ADRENAL MASS [None]
  - CARBOHYDRATE ANTIGEN 125 INCREASED [None]
  - CHOLECYSTECTOMY [None]
  - CHOLELITHIASIS [None]
  - COLITIS ISCHAEMIC [None]
  - COLON POLYPECTOMY [None]
  - COLONIC POLYP [None]
  - CONSTIPATION [None]
  - DIVERTICULUM [None]
  - DYSPHAGIA [None]
  - DYSPNOEA EXERTIONAL [None]
  - FATIGUE [None]
  - GASTRITIS [None]
  - GASTROOESOPHAGEAL REFLUX DISEASE [None]
  - HELICOBACTER GASTRITIS [None]
  - HYPERTENSION [None]
  - INTERVERTEBRAL DISC DEGENERATION [None]
  - INTERVERTEBRAL DISC PROTRUSION [None]
  - LYMPHADENOPATHY [None]
  - METAPLASIA [None]
  - MITRAL VALVE INCOMPETENCE [None]
  - MITRAL VALVE REPAIR [None]
  - MUSCLE STRAIN [None]
  - MYOFASCIAL PAIN SYNDROME [None]
  - NAUSEA [None]
  - OMENTECTOMY [None]
  - OOPHORECTOMY BILATERAL [None]
  - OVARIAN CANCER [None]
  - OVARIAN CANCER RECURRENT [None]
  - PAIN IN EXTREMITY [None]
  - POSTOPERATIVE ILEUS [None]
  - ROTATOR CUFF SYNDROME [None]
  - SHOULDER ARTHROPLASTY [None]
  - SPINAL CLAUDICATION [None]
  - SPINAL LAMINECTOMY [None]
  - WEIGHT DECREASED [None]
